FAERS Safety Report 16465694 (Version 6)
Quarter: 2022Q1

REPORT INFORMATION
  Report Type: Report from Study
  Country: JP (occurrence: JP)
  Receive Date: 20190621
  Receipt Date: 20220221
  Transmission Date: 20220423
  Serious: Yes (Other)
  Sender: FDA-Public Use
  Company Number: JP-GSKJP-JP2019JPN110033AA

PATIENT
  Sex: Female
  Weight: 51 kg

DRUGS (14)
  1. LAMIVUDINE [Suspect]
     Active Substance: LAMIVUDINE
     Indication: Chronic hepatitis B
     Dosage: 100 MG, QD
     Route: 048
     Dates: start: 200411, end: 201610
  2. HEPSERA [Suspect]
     Active Substance: ADEFOVIR DIPIVOXIL
     Indication: Chronic hepatitis B
     Dosage: 10 MG, QD
     Route: 048
     Dates: start: 200705, end: 201108
  3. HEPSERA [Suspect]
     Active Substance: ADEFOVIR DIPIVOXIL
     Dosage: 10 MG, PER DAY EVERY OTHER DAY
     Route: 048
     Dates: start: 201108, end: 201309
  4. HEPSERA [Suspect]
     Active Substance: ADEFOVIR DIPIVOXIL
     Dosage: 10 MG, PER DAY TWICE WEEKLY
     Route: 048
     Dates: start: 201309, end: 201407
  5. VEMLIDY [Concomitant]
     Active Substance: TENOFOVIR ALAFENAMIDE FUMARATE
     Indication: Chronic hepatitis B
     Dosage: UNK
     Dates: start: 201808
  6. UNISIA COMBINATION TABLETS [Concomitant]
     Indication: Hypertension
     Dosage: UNK
     Route: 048
     Dates: start: 201107, end: 201505
  7. BISOPROLOL FUMARATE TABLET [Concomitant]
     Indication: Hypertension
     Dosage: UNK
     Route: 048
     Dates: start: 201302, end: 201612
  8. AMLODIN TABLETS [Concomitant]
     Indication: Hypertension
     Dosage: UNK
     Route: 048
     Dates: start: 199504, end: 201107
  9. CANDESARTAN CILEXETIL [Concomitant]
     Active Substance: CANDESARTAN CILEXETIL
     Indication: Hypertension
     Dosage: UNK
     Route: 048
     Dates: start: 200210, end: 201107
  10. LIPOVAS TABLETS (SIMVASTATIN) [Concomitant]
     Indication: Hypercholesterolaemia
     Dosage: UNK
     Route: 048
     Dates: start: 200207, end: 201107
  11. LIPITOR TABLETS [Concomitant]
     Indication: Hypercholesterolaemia
     Dosage: UNK
     Route: 048
     Dates: start: 201107
  12. FLUITRAN TABLET [Concomitant]
     Indication: Hypertension
     Dosage: UNK
     Route: 048
     Dates: start: 201110, end: 201805
  13. AMLODIPINE BESYLATE\AZILSARTAN [Concomitant]
     Active Substance: AMLODIPINE BESYLATE\AZILSARTAN
     Indication: Hypertension
     Dosage: UNK
     Route: 048
     Dates: start: 201506
  14. ADALAT-CR TABLET [Concomitant]
     Indication: Hypertension
     Dosage: UNK
     Route: 048
     Dates: start: 201903

REACTIONS (3)
  - Hepatitis B [Recovered/Resolved]
  - Chronic kidney disease [Not Recovered/Not Resolved]
  - Renal impairment [Not Recovered/Not Resolved]

NARRATIVE: CASE EVENT DATE: 20070201
